FAERS Safety Report 6880262-1 (Version None)
Quarter: 2010Q3

REPORT INFORMATION
  Report Type: 
  Country: None (occurrence: None)
  Receive Date: 20100728
  Receipt Date: 20100715
  Transmission Date: 20110219
  Serious: Yes (Hospitalization)
  Sender: FDA-Public Use
  Company Number: FI-PFIZER INC-2010088170

PATIENT
  Age: 36 Year

DRUGS (5)
  1. SALAZOPYRIN [Suspect]
     Indication: ARTHRITIS
     Dosage: 2 G DAILY
     Route: 048
     Dates: start: 20100521, end: 20100707
  2. PAROXETINE HCL [Concomitant]
     Dosage: 20MG DAILY
     Route: 048
  3. SOMAC [Concomitant]
     Dosage: 40MG DAILY
     Route: 048
  4. BURANA [Concomitant]
     Dosage: 600 MG, 3X/DAY
     Route: 048
  5. PANADOL [Concomitant]
     Dosage: 1 G FROM ONE TO THREE TIMES DAILY
     Route: 048

REACTIONS (3)
  - ARTHRITIS [None]
  - C-REACTIVE PROTEIN INCREASED [None]
  - LEUKOPENIA [None]
